FAERS Safety Report 7792236-7 (Version None)
Quarter: 2011Q3

REPORT INFORMATION
  Report Type: 
  Country: None (occurrence: None)
  Receive Date: 20110929
  Receipt Date: 20110915
  Transmission Date: 20111222
  Serious: Yes (Other)
  Sender: FDA-Public Use
  Company Number: TPA2011A03640

PATIENT
  Age: 66 Year
  Sex: Male
  Weight: 138.8007 kg

DRUGS (1)
  1. ACTOPLUS MET [Suspect]
     Indication: BLOOD GLUCOSE INCREASED
     Dosage: 15/500 BID, PER ORAL
     Route: 048
     Dates: start: 20071001, end: 20080101

REACTIONS (1)
  - BLADDER TRANSITIONAL CELL CARCINOMA [None]
